FAERS Safety Report 7884409-X (Version None)
Quarter: 2011Q4

REPORT INFORMATION
  Report Type: 
  Country: None (occurrence: None)
  Receive Date: 20111102
  Receipt Date: 20110920
  Transmission Date: 20120403
  Serious: No
  Sender: FDA-Public Use
  Company Number: US-ASTRAZENECA-2011SE42647

PATIENT
  Age: 41 Year
  Sex: Male

DRUGS (8)
  1. HYDROCORTISONE [Concomitant]
  2. LEVOTHYROXINE SODIUM [Concomitant]
  3. TEMAZEPAM [Concomitant]
  4. VANDETANIB [Suspect]
     Indication: THYROID CANCER
     Route: 048
     Dates: start: 20110701
  5. CARVEDILOL [Concomitant]
  6. FLUDROCARTISONE ACETATE [Concomitant]
  7. IBUPROFEN [Concomitant]
  8. OXYCODONE HCL [Concomitant]
     Indication: PAIN

REACTIONS (2)
  - BLOOD PRESSURE INCREASED [None]
  - POLLAKIURIA [None]
